FAERS Safety Report 20453357 (Version 1)
Quarter: 2022Q1

REPORT INFORMATION
  Report Type: Spontaneous
  Country: US (occurrence: US)
  Receive Date: 20220210
  Receipt Date: 20220210
  Transmission Date: 20220424
  Serious: Yes (Hospitalization, Other)
  Sender: FDA-Public Use
  Company Number: US-SA-SAC20220202001279

PATIENT
  Age: 55 Year
  Sex: Male
  Weight: 99.773 kg

DRUGS (6)
  1. AUBAGIO [Suspect]
     Active Substance: TERIFLUNOMIDE
     Indication: Multiple sclerosis
     Dosage: 14 MG, DAILY
     Route: 048
     Dates: start: 2015
  2. VITAMIN D3 [Concomitant]
     Active Substance: CHOLECALCIFEROL
  3. HUMULIN 70/30 [Concomitant]
     Active Substance: INSULIN HUMAN
  4. LISINOPRIL [Concomitant]
     Active Substance: LISINOPRIL
  5. BACLOFEN [Concomitant]
     Active Substance: BACLOFEN
  6. VITAMIN D NOS [Concomitant]
     Active Substance: VITAMIN D NOS
     Dosage: 400 10 MCG TABLET

REACTIONS (3)
  - Hospitalisation [Unknown]
  - Cerebrovascular accident [Unknown]
  - Myocardial infarction [Unknown]

NARRATIVE: CASE EVENT DATE: 20211228
